FAERS Safety Report 8531500-0 (Version None)
Quarter: 2012Q3

REPORT INFORMATION
  Report Type: 
  Country: None (occurrence: None)
  Receive Date: 20120710
  Receipt Date: 20120625
  Transmission Date: 20120928
  Serious: Yes (Other)
  Sender: FDA-Public Use
  Company Number: DSU-2012-05114

PATIENT
  Age: 6 Decade
  Sex: Male
  Weight: 61.22 kg

DRUGS (12)
  1. DORZOLAMIDE HYDROCHLORIDE (DORZOLAMIDE HYDROCHLORIDE) (DORZOLAMIDE HYD [Concomitant]
  2. NORVASC [Suspect]
     Indication: BLOOD PRESSURE ABNORMAL
     Dosage: 10 MG (5 MG, BID), PER ORAL
     Route: 048
     Dates: start: 20090101
  3. ADVIL [Suspect]
     Indication: BACK PAIN
     Dosage: (QD) (BID)
     Dates: start: 20120601, end: 20120621
  4. ADVIL [Suspect]
     Indication: PAIN IN EXTREMITY
     Dosage: (QD) (BID)
     Dates: start: 20120601, end: 20120621
  5. ADVIL [Suspect]
     Indication: BACK PAIN
     Dosage: (QD) (BID)
     Dates: start: 20120622
  6. ADVIL [Suspect]
     Indication: PAIN IN EXTREMITY
     Dosage: (QD) (BID)
     Dates: start: 20120622
  7. UNSPECIFIED BLOOD PRESSURE MEDICATION (INGREDIENTS UNSPECIFIED) (ANTIH [Suspect]
     Indication: BLOOD PRESSURE ABNORMAL
  8. BENICAR HCT [Suspect]
     Indication: BLOOD PRESSURE ABNORMAL
     Dosage: PER ORAL
     Route: 048
  9. ANTIDEPRESSANTS (INGREDIENTS UNSPECIFIED) (ANTIDEPRESSANTS) [Suspect]
     Indication: DEPRESSION
  10. UNSPECIFIED EYE MEDICATION (INGREDIENTS UNSPECIFIED) [Suspect]
     Indication: GLAUCOMA
  11. XANAX [Concomitant]
  12. BENICAR [Suspect]
     Indication: BLOOD PRESSURE ABNORMAL
     Dosage: 20 MG (20 MG, QD), PER ORAL
     Route: 048

REACTIONS (14)
  - INTRAOCULAR PRESSURE INCREASED [None]
  - PAIN IN EXTREMITY [None]
  - ACCIDENT [None]
  - NIGHT SWEATS [None]
  - BLOOD SODIUM DECREASED [None]
  - MUSCULAR WEAKNESS [None]
  - DRUG INEFFECTIVE [None]
  - BLOOD PRESSURE INCREASED [None]
  - ELECTROLYTE DEPLETION [None]
  - ANXIETY [None]
  - OEDEMA PERIPHERAL [None]
  - DRY EYE [None]
  - BLOOD POTASSIUM DECREASED [None]
  - ARTHRALGIA [None]
